FAERS Safety Report 8356684-9 (Version None)
Quarter: 2012Q2

REPORT INFORMATION
  Report Type: 
  Country: None (occurrence: None)
  Receive Date: 20120514
  Receipt Date: 20120510
  Transmission Date: 20120825
  Serious: Yes (Hospitalization, Other)
  Sender: FDA-Public Use
  Company Number: PHHY2012AU017816

PATIENT
  Sex: Male

DRUGS (2)
  1. TASIGNA [Suspect]
     Indication: CHRONIC MYELOID LEUKAEMIA
     Dosage: 300 MG, BID
     Route: 048
     Dates: start: 20120215, end: 20120219
  2. TASIGNA [Suspect]
     Indication: CHROMOSOME ANALYSIS ABNORMAL

REACTIONS (8)
  - PANCREATITIS ACUTE [None]
  - PAIN IN EXTREMITY [None]
  - ABDOMINAL DISTENSION [None]
  - HALLUCINATION [None]
  - CHOLECYSTITIS [None]
  - BLADDER DISORDER [None]
  - ABDOMINAL PAIN UPPER [None]
  - BACK PAIN [None]
